FAERS Safety Report 5772875-5 (Version None)
Quarter: 2008Q2

REPORT INFORMATION
  Report Type: 
  Country: None (occurrence: None)
  Receive Date: 20080611
  Receipt Date: 20080528
  Transmission Date: 20081010
  Serious: Yes (Hospitalization)
  Sender: FDA-Public Use
  Company Number: LOC-00130

PATIENT
  Age: 84 Year
  Sex: Female
  Weight: 64.8644 kg

DRUGS (2)
  1. LOCOID LIPOCREAM [Suspect]
     Indication: RASH
     Dates: start: 20080523, end: 20080523
  2. LOCOID LIPOCREAM [Suspect]
     Indication: ROSACEA
     Dates: start: 20080523, end: 20080523

REACTIONS (5)
  - APPLICATION SITE ERYTHEMA [None]
  - APPLICATION SITE IRRITATION [None]
  - APPLICATION SITE RASH [None]
  - CONDITION AGGRAVATED [None]
  - RASH [None]
